FAERS Safety Report 8183453-5 (Version None)
Quarter: 2012Q1

REPORT INFORMATION
  Report Type: 
  Country: None (occurrence: None)
  Receive Date: 20120130
  Receipt Date: 20100618
  Transmission Date: 20120608
  Serious: Yes (Life-Threatening, Hospitalization, Other)
  Sender: FDA-Public Use
  Company Number: 002341

PATIENT
  Sex: Female
  Weight: 70 kg

DRUGS (15)
  1. KEPPRA [Suspect]
     Indication: CONVULSION
     Dosage: (ORAL)
     Route: 048
  2. PHENOBARBITAL TAB [Concomitant]
  3. MYCOPHENOLATE MOFETIL (CELLCEPT) [Concomitant]
  4. KETAMINE HCL [Concomitant]
  5. CYCLOPHOSPHAMIDE [Concomitant]
  6. KEPPRA [Suspect]
     Indication: CONVULSION
     Dosage: (INTRAVENOUS (NOT OTHERWISE SPECIFIED))
     Route: 042
  7. PROPOFOL [Concomitant]
  8. CIPRO XR [Concomitant]
  9. LACOSAMIDE [Suspect]
     Indication: CONVULSION
     Dosage: (200 MG BID INTRAVENOUS (NOT OTHERWISE SPECIFIED)), (200 MG LOADING DOSE INTRAVENOUS BOLUS)
     Dates: start: 20091001, end: 20091001
  10. LACOSAMIDE [Suspect]
     Indication: CONVULSION
     Dosage: (200 MG BID INTRAVENOUS (NOT OTHERWISE SPECIFIED)), (200 MG LOADING DOSE INTRAVENOUS BOLUS)
     Dates: start: 20091022, end: 20091023
  11. VERSED [Concomitant]
  12. FOSPHENYTOIN [Concomitant]
  13. VALPROIC ACID [Concomitant]
  14. PHENOBARBITAL TAB [Concomitant]
  15. FLAGYL [Concomitant]

REACTIONS (5)
  - ELECTROENCEPHALOGRAM ABNORMAL [None]
  - STATUS EPILEPTICUS [None]
  - PNEUMONIA [None]
  - ANGIOEDEMA [None]
  - CLOSTRIDIUM DIFFICILE COLITIS [None]
